FAERS Safety Report 14648876 (Version 5)
Quarter: 2019Q2

REPORT INFORMATION
  Report Type: Report from Study
  Country: AU (occurrence: AU)
  Receive Date: 20180316
  Receipt Date: 20190624
  Transmission Date: 20190711
  Serious: Yes (Hospitalization)
  Sender: FDA-Public Use
  Company Number: PHHO2018AU003381

PATIENT
  Age: 46 Year
  Sex: Female
  Weight: 102 kg

DRUGS (7)
  1. DITROPAN [Concomitant]
     Active Substance: OXYBUTYNIN CHLORIDE
     Indication: ATONIC URINARY BLADDER
     Dosage: 5 MG, QD
     Route: 048
     Dates: start: 20170811
  2. PREGABALIN. [Concomitant]
     Active Substance: PREGABALIN
     Indication: NEURALGIA
     Dosage: 150 MG, QD
     Route: 048
     Dates: start: 20130918, end: 20180301
  3. BACLOFEN. [Concomitant]
     Active Substance: BACLOFEN
     Indication: MUSCLE SPASMS
     Dosage: 20 MG, QD
     Route: 048
     Dates: start: 20160718
  4. PREGABALIN. [Concomitant]
     Active Substance: PREGABALIN
     Dosage: 75 MG, QD
     Route: 048
     Dates: end: 20180302
  5. OFATUMUMAB [Suspect]
     Active Substance: OFATUMUMAB
     Indication: RELAPSING MULTIPLE SCLEROSIS
     Dosage: 20 MG, QMO
     Route: 058
     Dates: start: 20171102
  6. OFATUMUMAB [Suspect]
     Active Substance: OFATUMUMAB
     Dosage: 14 MG, QD
     Route: 048
     Dates: start: 20171102
  7. VACCINIUM MACROCARPON [Concomitant]
     Active Substance: CRANBERRY
     Indication: ATONIC URINARY BLADDER
     Dosage: UNK
     Route: 065

REACTIONS (1)
  - Cystitis [Recovered/Resolved]

NARRATIVE: CASE EVENT DATE: 20180302
